FAERS Safety Report 12171240 (Version 2)
Quarter: 2017Q2

REPORT INFORMATION
  Report Type: Spontaneous
  Country: ES (occurrence: ES)
  Receive Date: 20160311
  Receipt Date: 20170509
  Transmission Date: 20170830
  Serious: Yes (Other)
  Sender: FDA-Public Use
  Company Number: ES-SUN PHARMACEUTICAL INDUSTRIES LTD-2016R1-112821

PATIENT
  Sex: Male

DRUGS (2)
  1. MEPERIDINE [Suspect]
     Active Substance: MEPERIDINE
     Indication: PRODUCT USED FOR UNKNOWN INDICATION
     Dosage: UNK
     Route: 064
  2. LEVOTHYROXINE. [Suspect]
     Active Substance: LEVOTHYROXINE
     Indication: HYPOTHYROIDISM
     Dosage: 25 MCG
     Route: 064

REACTIONS (4)
  - Hyperparathyroidism [Recovered/Resolved]
  - Tachypnoea [Unknown]
  - Bradycardia foetal [Unknown]
  - Foetal exposure during pregnancy [Recovered/Resolved]
